FAERS Safety Report 24687519 (Version 1)
Quarter: 2024Q4

REPORT INFORMATION
  Report Type: Spontaneous
  Country: US (occurrence: US)
  Receive Date: 20241202
  Receipt Date: 20241202
  Transmission Date: 20250115
  Serious: Yes (Other)
  Sender: MYLAN
  Company Number: US-MYLANLABS-2024M1107085

PATIENT
  Age: 31 Year
  Sex: Female

DRUGS (10)
  1. LENALIDOMIDE [Suspect]
     Active Substance: LENALIDOMIDE
     Indication: Glomerulonephritis proliferative
     Dosage: UNK,AS A PART OF VRD REGIMEN
     Route: 065
  2. LENALIDOMIDE [Suspect]
     Active Substance: LENALIDOMIDE
     Indication: Monoclonal immunoglobulin present
  3. BORTEZOMIB [Concomitant]
     Active Substance: BORTEZOMIB
     Indication: Glomerulonephritis proliferative
     Dosage: UNK,AS A PART OF VRD REGIMEN
     Route: 065
  4. BORTEZOMIB [Concomitant]
     Active Substance: BORTEZOMIB
     Indication: Monoclonal immunoglobulin present
     Dosage: UNK,AS A PART OF CYBORD REGIMEN
     Route: 065
  5. DEXAMETHASONE [Concomitant]
     Active Substance: DEXAMETHASONE
     Indication: Glomerulonephritis proliferative
     Dosage: UNK,AS A PART OF VRD REGIMEN
     Route: 065
  6. DEXAMETHASONE [Concomitant]
     Active Substance: DEXAMETHASONE
     Indication: Monoclonal immunoglobulin present
     Dosage: UNK,AS A PART OF CYBORD REGIMEN
     Route: 065
  7. DARATUMUMAB [Concomitant]
     Active Substance: DARATUMUMAB
     Indication: Glomerulonephritis proliferative
     Dosage: UNK
     Route: 065
  8. DARATUMUMAB [Concomitant]
     Active Substance: DARATUMUMAB
     Indication: Monoclonal immunoglobulin present
  9. CYCLOPHOSPHAMIDE [Concomitant]
     Active Substance: CYCLOPHOSPHAMIDE
     Indication: Glomerulonephritis proliferative
     Dosage: UNK,AS A PART OF CYBORD REGIMEN
     Route: 065
  10. CYCLOPHOSPHAMIDE [Concomitant]
     Active Substance: CYCLOPHOSPHAMIDE
     Indication: Monoclonal immunoglobulin present

REACTIONS (2)
  - Treatment failure [Unknown]
  - Off label use [Unknown]
